FAERS Safety Report 15140355 (Version 1)
Quarter: 2018Q3

REPORT INFORMATION
  Report Type: Spontaneous
  Country: DE (occurrence: DE)
  Receive Date: 20180713
  Receipt Date: 20180713
  Transmission Date: 20181010
  Serious: Yes (Death, Hospitalization)
  Sender: FDA-Public Use
  Company Number: PHHY2015DE178026

PATIENT
  Age: 67 Year
  Sex: Female
  Weight: 65 kg

DRUGS (20)
  1. PACLITAXEL. [Suspect]
     Active Substance: PACLITAXEL
     Dosage: 290 MG, QW3
     Route: 042
     Dates: start: 20140710, end: 20140710
  2. CARBOPLATIN. [Suspect]
     Active Substance: CARBOPLATIN
     Dosage: 550 MG, UNK (DOSE: 5 AUC)
     Route: 042
     Dates: start: 20140423, end: 20140423
  3. SERTRALINE [Concomitant]
     Active Substance: SERTRALINE HYDROCHLORIDE
     Indication: DEPRESSION
     Dosage: 100 MG, QD
     Route: 048
  4. CARBOPLATIN. [Suspect]
     Active Substance: CARBOPLATIN
     Dosage: 450 MG, UNK (DOSE: 5 AUC)
     Route: 042
     Dates: start: 20140710, end: 20140710
  5. SPASMEX [Concomitant]
     Indication: URGE INCONTINENCE
     Dosage: 45 MG, QD
     Route: 048
  6. PACLITAXEL. [Suspect]
     Active Substance: PACLITAXEL
     Dosage: 288 MG, QW3
     Route: 042
     Dates: start: 20140617, end: 20140617
  7. CARBOPLATIN. [Suspect]
     Active Substance: CARBOPLATIN
     Indication: PRODUCT USED FOR UNKNOWN INDICATION
     Dosage: 300 MG, UNK (DOSE: 5 AUC)
     Route: 042
     Dates: start: 20140306, end: 20140306
  8. BEVACIZUMAB. [Suspect]
     Active Substance: BEVACIZUMAB
     Indication: OVARIAN CANCER
     Dosage: 962 MG, QW3
     Route: 042
     Dates: start: 20140306, end: 20140306
  9. L?THYROXIN [Concomitant]
     Active Substance: LEVOTHYROXINE SODIUM
     Indication: HYPERTHYROIDISM
     Dosage: 100 MG, QD
     Route: 048
  10. CARBOPLATIN. [Suspect]
     Active Substance: CARBOPLATIN
     Dosage: 450 MG, UNK (DOSE: 5 AUC)
     Route: 042
     Dates: start: 20140401, end: 20140401
  11. PANTOPRAZOL [Concomitant]
     Active Substance: PANTOPRAZOLE SODIUM
     Indication: DYSPEPSIA
     Dosage: 40 MG, QD
     Route: 048
  12. PACLITAXEL. [Suspect]
     Active Substance: PACLITAXEL
     Indication: PRODUCT USED FOR UNKNOWN INDICATION
     Dosage: 222 MG, QW3
     Route: 042
     Dates: start: 20140306, end: 20140306
  13. CARBOPLATIN. [Suspect]
     Active Substance: CARBOPLATIN
     Dosage: 500 MG, UNK (DOSE: 5 AUC)
     Route: 042
     Dates: start: 20140520, end: 20140520
  14. PACLITAXEL. [Suspect]
     Active Substance: PACLITAXEL
     Dosage: 297 MG, QW3
     Route: 042
     Dates: start: 20140520, end: 20140520
  15. CARBOPLATIN. [Suspect]
     Active Substance: CARBOPLATIN
     Dosage: 450 MG, UNK (DOSE: 5 AUC)
     Route: 042
     Dates: start: 20140617, end: 20140617
  16. AMLODIPIN [Concomitant]
     Active Substance: AMLODIPINE BESYLATE
     Indication: HYPERTENSION
     Dosage: 5 MG, QD
     Route: 048
  17. PACLITAXEL. [Suspect]
     Active Substance: PACLITAXEL
     Dosage: 300 MG, QW3
     Route: 042
     Dates: start: 20140401, end: 20140401
  18. PACLITAXEL. [Suspect]
     Active Substance: PACLITAXEL
     Dosage: 282 MG, QW3
     Route: 042
     Dates: start: 20140423, end: 20140423
  19. BEVACIZUMAB. [Suspect]
     Active Substance: BEVACIZUMAB
     Dosage: 950 MG, QW3
     Route: 042
     Dates: start: 20140617, end: 20140617
  20. BEVACIZUMAB. [Suspect]
     Active Substance: BEVACIZUMAB
     Dosage: 1000 MG, UNK
     Route: 042

REACTIONS (5)
  - Vomiting [Unknown]
  - Gastrointestinal infection [Recovered/Resolved]
  - Multiple organ dysfunction syndrome [Fatal]
  - Ileus [Fatal]
  - Diarrhoea [Recovered/Resolved]

NARRATIVE: CASE EVENT DATE: 20140617
